FAERS Safety Report 8780990 (Version 1)
Quarter: 2012Q4

REPORT INFORMATION
  Report Type: 
  Country: FR (occurrence: FR)
  Receive Date: 20120913
  Receipt Date: 20120913
  Transmission Date: 20130627
  Serious: Yes (Hospitalization, Other)
  Sender: FDA-Public Use
  Company Number: FR-PFIZER INC-2012197317

PATIENT
  Age: 74 Year
  Sex: Female

DRUGS (5)
  1. CORDARONE [Suspect]
     Indication: ARRHYTHMIA
     Dosage: UNK
     Route: 048
     Dates: start: 201204, end: 20120728
  2. TAHOR [Concomitant]
     Dosage: UNK
  3. AMLOR [Concomitant]
     Dosage: UNK
  4. FORTZAAR [Concomitant]
     Dosage: UNK
  5. METFORMIN [Concomitant]
     Dosage: UNK

REACTIONS (3)
  - Papilloedema [Not Recovered/Not Resolved]
  - Visual acuity reduced [Recovering/Resolving]
  - Hypergammaglobulinaemia benign monoclonal [Unknown]
